FAERS Safety Report 6868188-0 (Version None)
Quarter: 2010Q3

REPORT INFORMATION
  Report Type: 
  Country: None (occurrence: None)
  Receive Date: 20100722
  Receipt Date: 20100716
  Transmission Date: 20110219
  Serious: Yes (Hospitalization)
  Sender: FDA-Public Use
  Company Number: KR-ABBOTT-10P-090-0656066-00

PATIENT
  Age: 47 Year
  Sex: Male
  Weight: 44 kg

DRUGS (15)
  1. KALETRA [Suspect]
     Indication: PRODUCT USED FOR UNKNOWN INDICATION
     Dates: start: 20100614
  2. ABC [Concomitant]
     Indication: ANTIRETROVIRAL THERAPY
     Dosage: 800MG DAILY
     Dates: start: 20100614
  3. LAMIVUDINE (EPIVIR HBV) [Concomitant]
     Indication: ANTIRETROVIRAL THERAPY
     Dosage: 300MG DAILY
     Route: 048
     Dates: start: 20100614
  4. SULFMETHOXAZOL, TRIMETHOPRIM [Concomitant]
     Indication: PROPHYLAXIS
     Dates: start: 20100614, end: 20100624
  5. SULFMETHOXAZOL, TRIMETHOPRIM [Concomitant]
     Indication: PNEUMOCYSTIS JIROVECI PNEUMONIA
  6. MACPERAN [Concomitant]
     Indication: PROPHYLAXIS OF NAUSEA AND VOMITING
     Dosage: 3 TABLETS DAILY
     Route: 048
     Dates: start: 20100614, end: 20100621
  7. MEGACE [Concomitant]
     Indication: HIV WASTING SYNDROME
     Dosage: 40MG/240ML
     Route: 048
     Dates: start: 20100621
  8. MEGACE [Concomitant]
     Indication: DECREASED APPETITE
  9. TAEKUK DAPSONE [Concomitant]
     Indication: PROPHYLAXIS
     Dosage: 100MG DAILY
     Route: 048
     Dates: start: 20100625
  10. TAEKUK DAPSONE [Concomitant]
     Indication: PNEUMOCYSTIS JIROVECI PNEUMONIA
  11. DAEWOO FOLIC ACID [Concomitant]
     Indication: ANAEMIA MEGALOBLASTIC
     Dosage: 1MG DAILY
     Route: 048
     Dates: start: 20100625
  12. LASIX [Concomitant]
     Indication: DIURETIC THERAPY
     Dosage: 40MG DAILY
     Route: 042
     Dates: start: 20100628, end: 20100629
  13. DILAX [Concomitant]
     Indication: DIURETIC THERAPY
     Dosage: 80MG DAILY
     Route: 048
     Dates: start: 20100630
  14. ALDACTONE [Concomitant]
     Indication: DIURETIC THERAPY
     Dosage: 25MG DAILY
     Route: 048
     Dates: start: 20100630
  15. MECOBALAMIN [Concomitant]
     Indication: ANAEMIA MEGALOBLASTIC
     Dates: start: 20100625

REACTIONS (4)
  - DEHYDRATION [None]
  - HYPERKALAEMIA [None]
  - HYPONATRAEMIA [None]
  - PNEUMONIA [None]
